FAERS Safety Report 8525624-1 (Version None)
Quarter: 2012Q3

REPORT INFORMATION
  Report Type: 
  Country: None (occurrence: None)
  Receive Date: 20120720
  Receipt Date: 20120713
  Transmission Date: 20120928
  Serious: Yes (Other)
  Sender: FDA-Public Use
  Company Number: US-PFIZER INC-2012171910

PATIENT
  Age: 70 Year
  Sex: Female

DRUGS (2)
  1. BENADRYL [Suspect]
  2. EPINEPHRINE [Suspect]

REACTIONS (1)
  - DRUG HYPERSENSITIVITY [None]
